FAERS Safety Report 6914446-0 (Version None)
Quarter: 2010Q3

REPORT INFORMATION
  Report Type: 
  Country: None (occurrence: None)
  Receive Date: 20100809
  Receipt Date: 20100728
  Transmission Date: 20110219
  Serious: Yes (Life-Threatening, Hospitalization, Other)
  Sender: FDA-Public Use
  Company Number: GB-PFIZER INC-2010095048

PATIENT
  Age: 42 Year
  Sex: Male
  Weight: 80 kg

DRUGS (4)
  1. CHAMPIX [Suspect]
     Indication: SMOKING CESSATION THERAPY
     Dosage: 1 MG, 2X/DAY
     Route: 048
     Dates: start: 20100501, end: 20100712
  2. HUMALOG [Concomitant]
     Dosage: UNK
     Route: 058
  3. LANTUS [Concomitant]
     Dosage: UNK
     Route: 058
  4. SIMVASTATIN [Concomitant]
     Dosage: 20 MG, UNK
     Route: 048

REACTIONS (1)
  - GRAND MAL CONVULSION [None]
